FAERS Safety Report 9946757 (Version 1)
Quarter: 2014Q1

REPORT INFORMATION
  Report Type: Report from Study
  Country: US (occurrence: US)
  Receive Date: 20140303
  Receipt Date: 20140303
  Transmission Date: 20141002
  Serious: No
  Sender: FDA-Public Use
  Company Number: US-ABBVIE-13P-163-1060236-00

PATIENT
  Age: 68 Year
  Sex: Female

DRUGS (17)
  1. HUMIRA [Suspect]
     Indication: COLITIS ULCERATIVE
     Dates: start: 2012
  2. PRAVASTAIN [Concomitant]
     Indication: PRODUCT USED FOR UNKNOWN INDICATION
     Dosage: AT BEDTIME
  3. CYMBALTA [Concomitant]
     Indication: PAIN
  4. CYMBALTA [Concomitant]
     Indication: PAIN
  5. CYMBALTA [Concomitant]
     Indication: UNEVALUABLE EVENT
  6. 8 HOUR TYLENOL [Concomitant]
     Indication: PAIN
  7. 8 HOUR TYLENOL [Concomitant]
     Indication: PAIN
  8. TRAMADOL [Concomitant]
     Indication: PAIN
  9. TRAMADOL [Concomitant]
     Indication: PAIN
  10. LOMOTIL [Concomitant]
     Indication: DIARRHOEA
  11. IMODIUM [Concomitant]
     Indication: DIARRHOEA
  12. MERCAPTOPURINE [Concomitant]
     Indication: PRODUCT USED FOR UNKNOWN INDICATION
  13. BENTYL [Concomitant]
     Indication: GASTRIC DISORDER
     Dosage: ABOUT 3 A DAY
  14. VITAMIN D [Concomitant]
     Indication: PRODUCT USED FOR UNKNOWN INDICATION
  15. LISINOPRIL [Concomitant]
     Indication: BLOOD PRESSURE
  16. CARVEDILOL [Concomitant]
     Indication: BLOOD PRESSURE
  17. GLUCOTROL [Concomitant]
     Indication: PRODUCT USED FOR UNKNOWN INDICATION
     Dosage: 1 TABLET IN AM AND 2 AT NIGHT

REACTIONS (1)
  - Alopecia [Not Recovered/Not Resolved]
